FAERS Safety Report 4797338-5 (Version None)
Quarter: 2005Q4

REPORT INFORMATION
  Report Type: 
  Country: None (occurrence: None)
  Receive Date: 20051013
  Receipt Date: 20051005
  Transmission Date: 20060501
  Serious: Yes (Hospitalization)
  Sender: FDA-Public Use
  Company Number: 2005PK01828

PATIENT
  Age: 44 Year
  Sex: Female

DRUGS (8)
  1. SEROQUEL [Suspect]
     Indication: HALLUCINATION
     Route: 048
     Dates: start: 20050812
  2. SEROQUEL [Suspect]
     Indication: DELUSIONAL DISORDER, UNSPECIFIED TYPE
     Route: 048
     Dates: start: 20050812
  3. SEROQUEL [Suspect]
     Route: 048
  4. SEROQUEL [Suspect]
     Route: 048
  5. VALPROATE SODIUM [Suspect]
     Indication: HALLUCINATION
     Route: 048
     Dates: start: 20050812
  6. VALPROATE SODIUM [Suspect]
     Indication: DELUSIONAL DISORDER, UNSPECIFIED TYPE
     Route: 048
     Dates: start: 20050812
  7. LAMOTRIGINE [Suspect]
     Indication: HALLUCINATION
     Route: 048
     Dates: start: 20050812
  8. LAMOTRIGINE [Suspect]
     Indication: DELUSIONAL DISORDER, UNSPECIFIED TYPE
     Route: 048
     Dates: start: 20050812

REACTIONS (2)
  - HEPATOCELLULAR DAMAGE [None]
  - INJURY [None]
